FAERS Safety Report 6557659-2 (Version None)
Quarter: 2010Q1

REPORT INFORMATION
  Report Type: 
  Country: None (occurrence: None)
  Receive Date: 20100129
  Receipt Date: 20090506
  Transmission Date: 20100710
  Serious: No
  Sender: FDA-Public Use
  Company Number: A0782797A

PATIENT
  Age: 22 Year
  Sex: Female

DRUGS (3)
  1. COMBIVIR [Suspect]
     Indication: DRUG USE FOR UNKNOWN INDICATION
     Dosage: 1TAB TWICE PER DAY
     Route: 048
     Dates: start: 20090427
  2. CIPRO [Concomitant]
  3. CLINDAMYCIN [Concomitant]

REACTIONS (1)
  - RASH ERYTHEMATOUS [None]
